FAERS Safety Report 16568319 (Version 1)
Quarter: 2019Q3

REPORT INFORMATION
  Report Type: Spontaneous
  Country: DE (occurrence: DE)
  Receive Date: 20190712
  Receipt Date: 20190712
  Transmission Date: 20191004
  Serious: Yes (Hospitalization, Other)
  Sender: FDA-Public Use
  Company Number: DE-ASCEND THERAPEUTICS-2070751

PATIENT
  Age: 38 Year
  Sex: Female

DRUGS (7)
  1. UTROGEST (PROGESTERONE)?INDICATION FOR USE: ASSISTED REPRODUCTIVE TECH [Suspect]
     Active Substance: PROGESTERONE
  2. ORGALUTRAN [Suspect]
     Active Substance: GANIRELIX ACETATE
  3. PREGNYL [Suspect]
     Active Substance: CHORIOGONADOTROPIN ALFA
  4. ESTROGEL [Suspect]
     Active Substance: ESTRADIOL
     Indication: ASSISTED REPRODUCTIVE TECHNOLOGY
  5. ESTRADIOL NOS (ESTRADIOL)?INDICATION FOR USE: ASSISTED REPRODUCTIVE TE [Suspect]
     Active Substance: ESTRADIOL
  6. GONAL-F [Suspect]
     Active Substance: FOLLITROPIN
  7. TRIPTOFEM (TRIPTORELIN ACETATE)?INDICATION FOR USE: ASSISTED REPRODUCT [Suspect]
     Active Substance: TRIPTORELIN ACETATE

REACTIONS (1)
  - Ovarian hyperstimulation syndrome [Recovered/Resolved]

NARRATIVE: CASE EVENT DATE: 20190612
